FAERS Safety Report 9336111 (Version 2)
Quarter: 2013Q4

REPORT INFORMATION
  Report Type: Report from Study
  Country: RS (occurrence: RS)
  Receive Date: 20130607
  Receipt Date: 20131025
  Transmission Date: 20140711
  Serious: Yes (Hospitalization)
  Sender: FDA-Public Use
  Company Number: RS-BIOGENIDEC-2012BI020781

PATIENT
  Age: 45 Year
  Sex: Male
  Weight: 82 kg

DRUGS (9)
  1. BG00012 [Suspect]
     Indication: MULTIPLE SCLEROSIS
     Dates: start: 20110524
  2. SIRDALUD [Concomitant]
     Indication: MULTIPLE SCLEROSIS
     Route: 048
  3. BEDOXINE [Concomitant]
     Indication: MULTIPLE SCLEROSIS
     Route: 048
     Dates: start: 2005
  4. BEVIPLEX [Concomitant]
     Indication: MULTIPLE SCLEROSIS
     Route: 048
     Dates: start: 2005
  5. TICLODIX [Concomitant]
     Indication: CARDIAC DISORDER
     Route: 048
     Dates: start: 2007
  6. RAMIPRIL [Concomitant]
     Indication: CARDIAC DISORDER
     Route: 048
     Dates: start: 2007
  7. CONCOR [Concomitant]
     Indication: CARDIAC DISORDER
     Route: 048
     Dates: start: 2007
  8. TOCOPHEROL [Concomitant]
     Indication: MULTIPLE SCLEROSIS
     Route: 048
     Dates: start: 20100910
  9. ZOLOFT [Concomitant]
     Indication: MULTIPLE SCLEROSIS
     Route: 048
     Dates: start: 20111105

REACTIONS (1)
  - Road traffic accident [Recovered/Resolved with Sequelae]
